FAERS Safety Report 7574320-6 (Version None)
Quarter: 2011Q2

REPORT INFORMATION
  Report Type: 
  Country: None (occurrence: None)
  Receive Date: 20110627
  Receipt Date: 20110621
  Transmission Date: 20111010
  Serious: Yes (Hospitalization)
  Sender: FDA-Public Use
  Company Number: SE-BRISTOL-MYERS SQUIBB COMPANY-15658537

PATIENT
  Age: 57 Year
  Sex: Male

DRUGS (14)
  1. CHOLECALCIFEROL [Concomitant]
     Dates: start: 20080101
  2. METFORMIN HCL [Suspect]
     Indication: TYPE 2 DIABETES MELLITUS
     Dosage: INTER ON 01APR11,RESTART ON 2MAY11.
     Dates: start: 20080521
  3. ACETYLCYSTEINE [Concomitant]
     Dosage: ACETYLCYSTEINE 200 MG 1 TAB 2-3 TIMES
     Dates: start: 20080101
  4. AMLODIPINE [Concomitant]
     Dates: start: 20080101
  5. SYMBICORT [Concomitant]
     Dosage: SYMBICORT FORTE TUBUHALER 320 MCG 1-2 INH TWICE DAILY
     Route: 055
     Dates: start: 20080101
  6. CALCICHEW [Concomitant]
     Dates: start: 20080101
  7. FOSAMAX [Concomitant]
     Dates: start: 20080101
  8. TRYPTIZOL [Concomitant]
     Dosage: TRYPTIZOL 20MG 2 TABS IN EVENING
     Dates: start: 20080101
  9. RHINOCORT [Concomitant]
     Dosage: RHINOCORT AQUA NASAL SPRAY 64MCH/DOSE 2 DOSES DAILY
     Route: 045
     Dates: start: 20080101
  10. SINGULAIR [Concomitant]
     Dosage: AT EVE
     Dates: start: 20080101
  11. SIMVASTATIN [Concomitant]
     Dosage: QT EVENING
  12. HYDROCORTISONE [Concomitant]
     Dosage: HYDROCORTISONE TABS 20MG DAILY+ HALF A TAB
     Dates: start: 20080101
  13. BARACLUDE [Suspect]
     Indication: HEPATITIS B
     Dates: start: 20080301
  14. LEVOTHYROXINE SODIUM [Concomitant]
     Dosage: ALSO TAKEN 125 MG 5 TIMES WEEEKLY
     Dates: start: 20080101

REACTIONS (7)
  - BLOOD LACTATE DEHYDROGENASE INCREASED [None]
  - BLOOD CREATINE PHOSPHOKINASE INCREASED [None]
  - ALANINE AMINOTRANSFERASE INCREASED [None]
  - BLOOD LACTIC ACID INCREASED [None]
  - ASPARTATE AMINOTRANSFERASE INCREASED [None]
  - ABDOMINAL DISCOMFORT [None]
  - BLOOD AMYLASE INCREASED [None]
